FAERS Safety Report 22638711 (Version 1)
Quarter: 2023Q2

REPORT INFORMATION
  Report Type: Report from Study
  Country: CA (occurrence: None)
  Receive Date: 20230626
  Receipt Date: 20230626
  Transmission Date: 20230722
  Serious: Yes (Hospitalization)
  Sender: FDA-Public Use
  Company Number: 2023A145199

PATIENT
  Sex: Female

DRUGS (4)
  1. FASENRA [Suspect]
     Active Substance: BENRALIZUMAB
     Indication: Asthma
     Route: 058
     Dates: start: 20180718
  2. PREDNISONE [Concomitant]
     Active Substance: PREDNISONE
     Dosage: 5 MG 1/2 TAB EVERY 2 DAYS
  3. ZENHALE [Concomitant]
     Active Substance: FORMOTEROL FUMARATE\MOMETASONE FUROATE
     Dosage: 200/5 MCG 2INH BID
  4. CANDESARTAN [Concomitant]
     Active Substance: CANDESARTAN
     Dosage: UNKNOWN

REACTIONS (2)
  - Asthma [Unknown]
  - Drug ineffective [Unknown]
